FAERS Safety Report 18257206 (Version 25)
Quarter: 2022Q3

REPORT INFORMATION
  Report Type: Report from Study
  Country: IL (occurrence: IL)
  Receive Date: 20200911
  Receipt Date: 20220816
  Transmission Date: 20221027
  Serious: Yes (Hospitalization, Other)
  Sender: FDA-Public Use
  Company Number: IL-ELI_LILLY_AND_COMPANY-IL202008009269

PATIENT
  Age: 76 Year
  Sex: Male
  Weight: 79.7 kg

DRUGS (60)
  1. PEMETREXED [Suspect]
     Active Substance: PEMETREXED
     Indication: Non-small cell lung cancer metastatic
     Dosage: 500 MG/M2, CYCLICAL
     Route: 042
     Dates: start: 20200701, end: 20200701
  2. PEMETREXED [Suspect]
     Active Substance: PEMETREXED
     Dosage: 500 MG/M2, CYCLICAL
     Route: 042
     Dates: start: 20200727, end: 20200727
  3. PEMETREXED [Suspect]
     Active Substance: PEMETREXED
     Dosage: 500 MG/M2, CYCLICAL
     Route: 042
     Dates: start: 20200908, end: 20200908
  4. PEMETREXED [Suspect]
     Active Substance: PEMETREXED
     Dosage: 500 MG/M2, CYCLICAL
     Route: 042
     Dates: start: 20201001, end: 20201022
  5. PEMBROLIZUMAB [Concomitant]
     Active Substance: PEMBROLIZUMAB
     Indication: Non-small cell lung cancer metastatic
     Dosage: 200 MG, CYCLICAL
     Route: 042
     Dates: start: 20200701, end: 20200701
  6. PEMBROLIZUMAB [Concomitant]
     Active Substance: PEMBROLIZUMAB
     Dosage: 200 MG, CYCLICAL
     Route: 042
     Dates: start: 20200727, end: 20200727
  7. PEMBROLIZUMAB [Concomitant]
     Active Substance: PEMBROLIZUMAB
     Dosage: 200 MG, CYCLICAL
     Route: 042
     Dates: start: 20200908, end: 20200908
  8. PEMBROLIZUMAB [Concomitant]
     Active Substance: PEMBROLIZUMAB
     Dosage: 200 MG, CYCLICAL
     Route: 042
     Dates: start: 20201001, end: 20210427
  9. CARBOPLATIN [Concomitant]
     Active Substance: CARBOPLATIN
     Indication: Non-small cell lung cancer metastatic
     Dosage: UNK UNK, CYCLICAL
     Route: 042
     Dates: start: 20200701, end: 20200701
  10. CARBOPLATIN [Concomitant]
     Active Substance: CARBOPLATIN
     Dosage: UNK UNK, CYCLICAL
     Route: 042
     Dates: start: 20200727, end: 20200727
  11. CARBOPLATIN [Concomitant]
     Active Substance: CARBOPLATIN
     Dosage: UNK UNK, CYCLICAL
     Route: 042
     Dates: start: 20200908, end: 20200908
  12. CARBOPLATIN [Concomitant]
     Active Substance: CARBOPLATIN
     Dosage: UNK UNK, CYCLICAL
     Route: 042
     Dates: start: 20201001
  13. LANTUS [Concomitant]
     Active Substance: INSULIN GLARGINE
     Indication: Product used for unknown indication
     Dosage: 100 DOSAGE FORM, UNKNOWN
     Route: 058
     Dates: start: 200501, end: 202009
  14. ASPIRIN [Concomitant]
     Active Substance: ASPIRIN
     Indication: Hypertension
     Dosage: 100 MG, UNKNOWN
     Route: 065
     Dates: start: 200501, end: 20200810
  15. TAMSULIN [Concomitant]
     Indication: Benign prostatic hyperplasia
     Dosage: 0.4 MG, UNKNOWN
     Route: 065
     Dates: start: 200501, end: 20200810
  16. BETAHISTINE [Concomitant]
     Active Substance: BETAHISTINE
     Indication: Balance disorder
     Dosage: 16 MG, UNKNOWN
     Route: 065
     Dates: start: 200601, end: 20200803
  17. REPAGLINIDE [Concomitant]
     Active Substance: REPAGLINIDE
     Indication: Diabetes mellitus
     Dosage: 1 MG, UNKNOWN
     Route: 065
     Dates: start: 201601, end: 20200803
  18. METFORMIN HYDROCHLORIDE [Concomitant]
     Active Substance: METFORMIN HYDROCHLORIDE
     Indication: Diabetes mellitus
     Dosage: 850 MG, UNKNOWN
     Route: 065
     Dates: start: 200001, end: 20200823
  19. VALSARTAN [Concomitant]
     Active Substance: VALSARTAN
     Indication: Product used for unknown indication
     Dosage: 160 MG, UNKNOWN
     Route: 065
     Dates: start: 201601
  20. JARDIANCE [Concomitant]
     Active Substance: EMPAGLIFLOZIN
     Indication: Product used for unknown indication
     Dosage: 10 MG, UNKNOWN
     Route: 065
     Dates: start: 201601, end: 202009
  21. ACETAMINOPHEN [Concomitant]
     Active Substance: ACETAMINOPHEN
     Indication: Product used for unknown indication
     Dosage: 500 MG, UNKNOWN
     Route: 065
     Dates: start: 201201
  22. METAMIZOLE [Concomitant]
     Active Substance: METAMIZOLE
     Indication: Product used for unknown indication
     Dosage: 500 MG, UNKNOWN
     Route: 065
     Dates: start: 201201, end: 20200810
  23. ROSUVASTATIN [Concomitant]
     Active Substance: ROSUVASTATIN
     Indication: Product used for unknown indication
     Dosage: 20 MG, UNKNOWN
     Route: 065
     Dates: start: 201001, end: 202009
  24. ARCOXIA [Concomitant]
     Active Substance: ETORICOXIB
     Indication: Product used for unknown indication
     Dosage: 80 MG, UNKNOWN
     Route: 065
     Dates: start: 201401, end: 202009
  25. FOLIC ACID [Concomitant]
     Active Substance: FOLIC ACID
     Indication: Product used for unknown indication
     Dosage: 0.4 MG, UNKNOWN
     Route: 065
     Dates: start: 20200615, end: 20201028
  26. SEDURAL [Concomitant]
     Indication: Product used for unknown indication
     Dosage: 100 MG, UNKNOWN
     Route: 065
     Dates: start: 20200719, end: 20200810
  27. NALOXONE [Concomitant]
     Active Substance: NALOXONE
     Indication: Drug therapy
     Dosage: UNK UNK, UNKNOWN
     Route: 065
  28. MAGNESIUM DIASPORAL 300 [Concomitant]
     Indication: Hypomagnesaemia
     Dosage: UNK UNK, UNKNOWN
     Route: 065
  29. MAGNESIUM SULFATE [Concomitant]
     Active Substance: MAGNESIUM SULFATE
     Indication: Hypomagnesaemia
     Dosage: UNK UNK, UNKNOWN
     Route: 065
  30. MEGLUMINE IOXITHALAMATE [Concomitant]
     Active Substance: MEGLUMINE IOXITHALAMATE
     Indication: Computerised tomogram
     Dosage: UNK UNK, UNKNOWN
     Route: 065
  31. TRIAMCINOLONE ACETONIDE [Concomitant]
     Active Substance: TRIAMCINOLONE ACETONIDE
     Indication: Fungal infection
     Dosage: UNK UNK, UNKNOWN
     Route: 065
  32. DEXAMETHASONE [Concomitant]
     Active Substance: DEXAMETHASONE
     Indication: Decreased appetite
     Dosage: UNK UNK, UNKNOWN
     Route: 065
  33. HALDOL [Concomitant]
     Active Substance: HALOPERIDOL
     Indication: Sedation
     Dosage: UNK UNK, UNKNOWN
     Route: 065
  34. ZYPREXA [Concomitant]
     Active Substance: OLANZAPINE
     Indication: Sedation
     Dosage: UNK UNK, UNKNOWN
     Route: 065
  35. CEFTRIAXONE [Concomitant]
     Active Substance: CEFTRIAXONE
     Indication: Pneumonia aspiration
     Dosage: UNK UNK, UNKNOWN
     Route: 065
  36. CEFTRIAXONE [Concomitant]
     Active Substance: CEFTRIAXONE
     Indication: Infection
  37. DIPHENHYDRAMINE [Concomitant]
     Active Substance: DIPHENHYDRAMINE
     Indication: Sedative therapy
     Dosage: UNK UNK, UNKNOWN
     Route: 065
  38. LOSEC [Concomitant]
     Active Substance: OMEPRAZOLE
     Indication: Gastrooesophageal reflux disease
     Dosage: UNK UNK, UNKNOWN
     Route: 065
  39. LOSEC [Concomitant]
     Active Substance: OMEPRAZOLE
     Indication: Prophylaxis
  40. LOSEC [Concomitant]
     Active Substance: OMEPRAZOLE
     Indication: Supplementation therapy
  41. FENTORA [Concomitant]
     Active Substance: FENTANYL CITRATE
     Indication: Pain
     Dosage: UNK UNK, UNKNOWN
     Route: 065
  42. OXYCOD [OXYCODONE HYDROCHLORIDE] [Concomitant]
     Indication: Pain
     Dosage: UNK UNK, UNKNOWN
     Route: 065
  43. METHADONE HYDROCHLORIDE [Concomitant]
     Active Substance: METHADONE HYDROCHLORIDE
     Indication: Pain
     Dosage: UNK UNK, UNKNOWN
     Route: 065
  44. CYMBALTA [Concomitant]
     Active Substance: DULOXETINE HYDROCHLORIDE
     Indication: Pain
     Dosage: UNK UNK, UNKNOWN
     Route: 065
  45. PERFALGAN [Concomitant]
     Active Substance: ACETAMINOPHEN
     Indication: Pain
     Dosage: UNK UNK, UNKNOWN
     Route: 065
  46. AVILAC [LACTULOSE] [Concomitant]
     Indication: Constipation
     Dosage: UNK UNK, UNKNOWN
     Route: 065
  47. BISOPROLOL FUMARATE [Concomitant]
     Active Substance: BISOPROLOL FUMARATE
     Indication: Hypertension
     Dosage: UNK UNK, UNKNOWN
     Route: 065
  48. VALSARTAN [Concomitant]
     Active Substance: VALSARTAN
     Indication: Hypertension
     Dosage: UNK UNK, UNKNOWN
     Route: 065
  49. OLANZAPINE [Concomitant]
     Active Substance: OLANZAPINE
     Indication: Sedation
     Dosage: UNK UNK, UNKNOWN
     Route: 065
  50. BISACODYL [Concomitant]
     Active Substance: BISACODYL
     Indication: Constipation
     Dosage: UNK UNK, UNKNOWN
     Route: 065
  51. PRAMINAL [METOCLOPRAMIDE HYDROCHLORIDE] [Concomitant]
     Indication: Nausea
     Dosage: UNK UNK, UNKNOWN
     Route: 065
  52. MYDRAMIDE [Concomitant]
     Indication: Ophthalmological examination
     Dosage: UNK UNK, UNKNOWN
     Route: 065
  53. AMLOW [AMLODIPINE BESILATE] [Concomitant]
     Indication: Hypertension
     Dosage: UNK UNK, UNKNOWN
     Route: 065
  54. TEVACUTAN [Concomitant]
     Indication: Wound
     Dosage: UNK UNK, UNKNOWN
     Route: 065
  55. QUETIAPINE FUMARATE [Concomitant]
     Active Substance: QUETIAPINE FUMARATE
     Indication: Delirium
     Dosage: UNK UNK, UNKNOWN
     Route: 065
  56. ATROPINE SULFATE [Concomitant]
     Active Substance: ATROPINE SULFATE
     Indication: Airway secretion clearance therapy
     Dosage: UNK UNK, UNKNOWN
     Route: 065
  57. INSULIN NOS [Concomitant]
     Active Substance: INSULIN NOS
     Indication: Diabetes mellitus
     Dosage: UNK UNK, UNKNOWN
     Route: 065
  58. AZENIL [AZITHROMYCIN] [Concomitant]
     Indication: Pneumonia
  59. LEVOFLOXACIN [Concomitant]
     Active Substance: LEVOFLOXACIN
     Indication: Pneumonia
  60. SODIUM CHLORIDE [Concomitant]
     Active Substance: SODIUM CHLORIDE
     Indication: Blood creatinine increased

REACTIONS (6)
  - Post herpetic neuralgia [Not Recovered/Not Resolved]
  - Cerebrovascular accident [Recovered/Resolved]
  - Pulmonary embolism [Not Recovered/Not Resolved]
  - Pyrexia [Recovered/Resolved]
  - Febrile neutropenia [Recovered/Resolved]
  - Herpes zoster [Not Recovered/Not Resolved]

NARRATIVE: CASE EVENT DATE: 20200810
